FAERS Safety Report 7335086-8 (Version None)
Quarter: 2011Q1

REPORT INFORMATION
  Report Type: 
  Country: None (occurrence: None)
  Receive Date: 20110307
  Receipt Date: 20110222
  Transmission Date: 20110831
  Serious: Yes (Death)
  Sender: FDA-Public Use
  Company Number: US-ELI_LILLY_AND_COMPANY-US201102006756

PATIENT
  Age: 14 Year
  Sex: Male

DRUGS (5)
  1. HYDROCHLOROTHIAZIDE W/OLMESARTAN [Concomitant]
  2. ACETAMINOPHEN [Concomitant]
  3. FLUOXETINE HYDROCHLORIDE [Suspect]
  4. DIPHENOXYLATE HCL + ATROPINE SULFATE [Concomitant]
  5. PREDNISOLONE [Concomitant]

REACTIONS (1)
  - COMPLETED SUICIDE [None]
